FAERS Safety Report 25772028 (Version 2)
Quarter: 2025Q3

REPORT INFORMATION
  Report Type: Spontaneous
  Country: US (occurrence: US)
  Receive Date: 20250908
  Receipt Date: 20250918
  Transmission Date: 20251020
  Serious: Yes (Other)
  Sender: SUNOVION
  Company Number: US-SMPA-2025SPA011244

PATIENT
  Age: 72 Year
  Sex: Male

DRUGS (22)
  1. ORGOVYX [Suspect]
     Active Substance: RELUGOLIX
     Indication: Prostate cancer
     Route: 048
     Dates: start: 20250820, end: 20250820
  2. ORGOVYX [Suspect]
     Active Substance: RELUGOLIX
     Route: 048
  3. NUBEQA [Concomitant]
     Active Substance: DAROLUTAMIDE
     Dosage: 600 MG, BID
  4. TYLENOL [Concomitant]
     Active Substance: ACETAMINOPHEN
  5. VITAMIN C [Concomitant]
     Active Substance: ASCORBIC ACID
  6. BETAMETHASONE DIPROPIONATE [Concomitant]
     Active Substance: BETAMETHASONE DIPROPIONATE
  7. PEPTO-BISMOL [Concomitant]
     Active Substance: BISMUTH SUBSALICYLATE
  8. VITAMIN D [Concomitant]
     Active Substance: VITAMIN D NOS
  9. IBUPROFEN [Concomitant]
     Active Substance: IBUPROFEN
  10. LORAZEPAM [Concomitant]
     Active Substance: LORAZEPAM
  11. NEOMYCIN AND POLYMYXIN B SULFATES AND DEXAMETHASONE [Concomitant]
     Active Substance: DEXAMETHASONE\NEOMYCIN SULFATE\POLYMYXIN B SULFATE
     Route: 047
  12. PANTOPRAZOLE [Concomitant]
     Active Substance: PANTOPRAZOLE
  13. SIMETHICONE (DIMETHICONE) [Concomitant]
     Active Substance: DIMETHICONE
     Route: 045
  14. OCEAN SALINE NASAL SPRAY [Concomitant]
     Active Substance: SODIUM CHLORIDE
     Route: 045
  15. Calcium;Magnesium;Zinc [Concomitant]
     Route: 048
  16. NIACIN [Concomitant]
     Active Substance: NIACIN
  17. MAGNESIUM GLYCINATE [Concomitant]
     Active Substance: MAGNESIUM GLYCINATE
  18. Prunelax [Concomitant]
  19. TYLENOL PM [Concomitant]
     Active Substance: ACETAMINOPHEN\DIPHENHYDRAMINE
  20. MUPIROCIN [Concomitant]
     Active Substance: MUPIROCIN
  21. LIDOCAINE [Concomitant]
     Active Substance: LIDOCAINE
  22. DIETARY SUPPLEMENT [Concomitant]
     Active Substance: DIETARY SUPPLEMENT

REACTIONS (9)
  - Suicidal ideation [Unknown]
  - Abnormal dreams [Unknown]
  - Muscle spasms [Unknown]
  - Dysuria [Unknown]
  - Pain [Unknown]
  - Anorectal discomfort [Unknown]
  - Rash [Unknown]
  - Constipation [Unknown]
  - Hot flush [Unknown]
